FAERS Safety Report 14212260 (Version 1)
Quarter: 2017Q4

REPORT INFORMATION
  Report Type: Spontaneous
  Country: US (occurrence: None)
  Receive Date: 20171121
  Receipt Date: 20171121
  Transmission Date: 20180321
  Serious: Yes (Life-Threatening, Hospitalization)
  Sender: FDA-Public Use
  Company Number: None

PATIENT
  Age: 72 Year
  Sex: Male

DRUGS (1)
  1. SULFAMETHOXAZOLE/TRIMETHOPRIM [Suspect]
     Active Substance: SULFAMETHOXAZOLE\TRIMETHOPRIM
     Indication: URINARY TRACT INFECTION
     Route: 048
     Dates: start: 20171017, end: 20171027

REACTIONS (9)
  - Confusional state [None]
  - Nervousness [None]
  - Decreased appetite [None]
  - Hypoglycaemia [None]
  - Acute kidney injury [None]
  - Mental status changes [None]
  - Urinary tract infection [None]
  - Hallucination [None]
  - Diarrhoea [None]

NARRATIVE: CASE EVENT DATE: 20171027
